FAERS Safety Report 13360405 (Version 2)
Quarter: 2017Q2

REPORT INFORMATION
  Report Type: Spontaneous
  Country: BR (occurrence: BR)
  Receive Date: 20170322
  Receipt Date: 20170404
  Transmission Date: 20170830
  Serious: Yes (Hospitalization)
  Sender: FDA-Public Use
  Company Number: BR-GE HEALTHCARE LIFE SCIENCES-2017CSU000537

PATIENT

DRUGS (3)
  1. OMNISCAN [Suspect]
     Active Substance: GADODIAMIDE
     Indication: COGNITIVE DISORDER
  2. OMNISCAN [Suspect]
     Active Substance: GADODIAMIDE
     Indication: MEMORY IMPAIRMENT
     Dosage: 10 ML, SINGLE
     Route: 042
     Dates: start: 20170110, end: 20170110
  3. OMNISCAN [Suspect]
     Active Substance: GADODIAMIDE
     Indication: CEREBROVASCULAR ACCIDENT

REACTIONS (7)
  - Anal incontinence [Recovered/Resolved]
  - Blood pressure fluctuation [Recovered/Resolved]
  - Abdominal pain [Recovered/Resolved]
  - Hyperhidrosis [Recovered/Resolved]
  - Dyspnoea [Recovered/Resolved]
  - Urinary incontinence [Recovered/Resolved]
  - Malaise [Recovered/Resolved]

NARRATIVE: CASE EVENT DATE: 20170110
